FAERS Safety Report 8392520-2 (Version None)
Quarter: 2012Q2

REPORT INFORMATION
  Report Type: 
  Country: None (occurrence: None)
  Receive Date: 20120529
  Receipt Date: 20120517
  Transmission Date: 20120825
  Serious: Yes (Hospitalization)
  Sender: FDA-Public Use
  Company Number: US-MERCK-1109USA03247

PATIENT
  Age: 19 Year
  Sex: Male

DRUGS (9)
  1. FOSAMAX [Suspect]
     Indication: OSTEOPENIA
     Route: 048
     Dates: start: 20010124, end: 20060210
  2. FOSAMAX [Suspect]
     Indication: OSTEOPOROSIS
     Route: 048
     Dates: start: 20010124, end: 20060210
  3. VITAMIN D (UNSPECIFIED) [Concomitant]
     Route: 065
     Dates: start: 20010101
  4. PREDNISONE [Concomitant]
     Indication: JUVENILE ARTHRITIS
     Route: 048
     Dates: start: 19910101
  5. NAPROXEN [Concomitant]
     Dosage: 1 QD OR BID
     Route: 048
     Dates: start: 19910101
  6. ENBREL [Concomitant]
     Indication: JUVENILE ARTHRITIS
     Dosage: 72-96 HRS APART
     Route: 058
     Dates: start: 20000801
  7. METHOTREXATE [Concomitant]
     Indication: JUVENILE ARTHRITIS
     Route: 048
     Dates: start: 19980101, end: 20080101
  8. CEPHALEXIN [Concomitant]
     Route: 065
  9. CALCIUM (UNSPECIFIED) [Concomitant]
     Route: 065

REACTIONS (18)
  - BLOOD ALKALINE PHOSPHATASE INCREASED [None]
  - PRESYNCOPE [None]
  - FEMUR FRACTURE [None]
  - LOW TURNOVER OSTEOPATHY [None]
  - TRANSAMINASES INCREASED [None]
  - IMPAIRED HEALING [None]
  - BONE METABOLISM DISORDER [None]
  - UPPER LIMB FRACTURE [None]
  - RHEUMATOID ARTHRITIS [None]
  - FRACTURE NONUNION [None]
  - NEPHROLITHIASIS [None]
  - OSTEOSCLEROSIS [None]
  - TREATMENT NONCOMPLIANCE [None]
  - OSTEOARTHRITIS [None]
  - OFF LABEL USE [None]
  - LYME DISEASE [None]
  - CLAVICLE FRACTURE [None]
  - DEVICE FAILURE [None]
